FAERS Safety Report 4827787-8 (Version None)
Quarter: 2005Q4

REPORT INFORMATION
  Report Type: 
  Country: None (occurrence: None)
  Receive Date: 20051110
  Receipt Date: 20051029
  Transmission Date: 20060501
  Serious: Yes (Hospitalization, Other)
  Sender: FDA-Public Use
  Company Number: 2005124413

PATIENT
  Sex: Female

DRUGS (1)
  1. MACUGEN [Suspect]
     Indication: ILL-DEFINED DISORDER
     Dosage: (1 IN 6 WK), INTRAVITREOUS
     Dates: start: 20050822

REACTIONS (4)
  - COMA [None]
  - DIFFICULTY IN WALKING [None]
  - MOVEMENT DISORDER [None]
  - RASH [None]
